FAERS Safety Report 5056255-6 (Version None)
Quarter: 2006Q3

REPORT INFORMATION
  Report Type: 
  Country: None (occurrence: None)
  Receive Date: 20060720
  Receipt Date: 20060713
  Transmission Date: 20061208
  Serious: Yes (Hospitalization)
  Sender: FDA-Public Use
  Company Number: 2006PK01536

PATIENT
  Age: 97 Year
  Sex: Male
  Weight: 45 kg

DRUGS (9)
  1. BELOC-ZOK [Suspect]
     Route: 048
     Dates: end: 20050821
  2. SEDATIVUM [Suspect]
     Route: 048
     Dates: start: 20050820, end: 20050820
  3. NITRODERM [Concomitant]
     Route: 062
  4. CALCIMAGON-D3 [Concomitant]
     Route: 048
  5. KENDURAL [Concomitant]
     Route: 048
  6. ASPIRIN [Concomitant]
     Route: 048
  7. NEXIUM [Concomitant]
     Route: 048
     Dates: end: 20050824
  8. STUGERON [Concomitant]
     Route: 048
     Dates: end: 20050824
  9. NOVALGIN [Concomitant]
     Route: 048
     Dates: end: 20050821

REACTIONS (4)
  - ATRIOVENTRICULAR BLOCK FIRST DEGREE [None]
  - CHEYNE-STOKES RESPIRATION [None]
  - GENERAL PHYSICAL HEALTH DETERIORATION [None]
  - STUPOR [None]
